FAERS Safety Report 11177166 (Version 2)
Quarter: 2015Q2

REPORT INFORMATION
  Report Type: Spontaneous
  Country: US (occurrence: US)
  Receive Date: 20150610
  Receipt Date: 20150610
  Transmission Date: 20150821
  Serious: No
  Sender: FDA-Public Use
  Company Number: US-PFIZER INC-2015182061

PATIENT
  Age: 61 Year
  Sex: Female
  Weight: 102 kg

DRUGS (1)
  1. IBRANCE [Suspect]
     Active Substance: PALBOCICLIB
     Indication: BREAST CANCER
     Dosage: 125 MG DAILY FROM D1 TO D21 OF A 28-DAY CYCLE
     Route: 048
     Dates: start: 20150512

REACTIONS (4)
  - Productive cough [Unknown]
  - Nasal congestion [Unknown]
  - Malaise [Unknown]
  - Pyrexia [Recovered/Resolved]
